FAERS Safety Report 8992863 (Version 2)
Quarter: 2013Q1

REPORT INFORMATION
  Report Type: Report from Study
  Country: IT (occurrence: IT)
  Receive Date: 20130102
  Receipt Date: 20130123
  Transmission Date: 20140127
  Serious: Yes (Hospitalization, Disabling)
  Sender: FDA-Public Use
  Company Number: IT-SHIRE-SPV1-2012-00988

PATIENT
  Age: 7 Year
  Sex: Male

DRUGS (8)
  1. IDURSULFASE [Suspect]
     Indication: MUCOPOLYSACCHARIDOSIS II
     Dosage: 0.55 MG/KG, 1X/WEEK
     Route: 041
     Dates: start: 20061019
  2. SALBUTAMOL [Concomitant]
     Indication: RESPIRATORY DISORDER
     Dosage: 2 DF, 1X/DAY:QD
     Route: 055
     Dates: start: 20081228
  3. CETIRIZINE [Concomitant]
     Indication: HYPERSENSITIVITY
     Dosage: 10 GTT, 1X/DAY:QD
     Route: 048
     Dates: start: 20080221
  4. MONTELUKAST [Concomitant]
     Indication: ASTHMA
     Dosage: 4 MG, 1X/DAY:QD
     Route: 048
  5. RAMIPRIL [Concomitant]
     Indication: PRODUCT USED FOR UNKNOWN INDICATION
     Dosage: UNK
     Dates: start: 201105
  6. SODIUM BICARBONATE [Concomitant]
     Indication: PRODUCT USED FOR UNKNOWN INDICATION
     Dosage: UNK
     Dates: start: 2011
  7. ACETAZOLAMIDE [Concomitant]
     Indication: PRODUCT USED FOR UNKNOWN INDICATION
     Dosage: UNK
     Dates: start: 2012
  8. AMOXICILLIN [Concomitant]
     Indication: PRODUCT USED FOR UNKNOWN INDICATION
     Dosage: UNK
     Dates: start: 2012

REACTIONS (2)
  - Abasia [Recovered/Resolved]
  - Balance disorder [Unknown]
